FAERS Safety Report 9394552 (Version 1)
Quarter: 2013Q4

REPORT INFORMATION
  Report Type: Spontaneous
  Country: US (occurrence: None)
  Receive Date: 20130709
  Receipt Date: 20130709
  Transmission Date: 20140711
  Serious: Yes (Other)
  Sender: FDA-Public Use
  Company Number: None

PATIENT
  Age: 59 Year
  Sex: Female
  Weight: 86.5 kg

DRUGS (1)
  1. FRESENIUS SALINE [Suspect]
     Dates: start: 20130508

REACTIONS (3)
  - Dyspnoea [None]
  - Chest pain [None]
  - Haemodialysis [None]
